FAERS Safety Report 19679062 (Version 1)
Quarter: 2021Q3

REPORT INFORMATION
  Report Type: Spontaneous
  Country: JP (occurrence: JP)
  Receive Date: 20210810
  Receipt Date: 20210810
  Transmission Date: 20211014
  Serious: Yes (Other)
  Sender: FDA-Public Use
  Company Number: NVSJ2021JP011758

PATIENT
  Age: 70 Year
  Sex: Male

DRUGS (2)
  1. CARBOPLATIN INTRAVENOUS INFUSION [Suspect]
     Active Substance: CARBOPLATIN
     Indication: PANCREATIC NEUROENDOCRINE TUMOUR
     Dosage: UNK
     Route: 041
  2. ETOPOSIDE INTRAVENOUS INFUSION [Suspect]
     Active Substance: ETOPOSIDE
     Indication: PANCREATIC NEUROENDOCRINE TUMOUR
     Dosage: UNK
     Route: 041

REACTIONS (5)
  - Pneumonia [Unknown]
  - Malignant neoplasm progression [Unknown]
  - Pyrexia [Unknown]
  - Product use in unapproved indication [Unknown]
  - Metastases to bone [Unknown]
